FAERS Safety Report 24394521 (Version 2)
Quarter: 2025Q3

REPORT INFORMATION
  Report Type: Report from Study
  Country: EU (occurrence: EU)
  Receive Date: 20241004
  Receipt Date: 20250809
  Transmission Date: 20251021
  Serious: Yes (Hospitalization)
  Sender: ALEXION PHARMACEUTICALS
  Company Number: EU-ASTRAZENECA-202409EEA006473IE

PATIENT
  Age: 62 Year
  Sex: Female

DRUGS (9)
  1. FASENRA [Suspect]
     Active Substance: BENRALIZUMAB
     Indication: Asthma
  2. MONTELUKAST [Concomitant]
     Active Substance: MONTELUKAST
     Route: 050
  3. FLUTICASONE PROPIONATE [Concomitant]
     Active Substance: FLUTICASONE PROPIONATE
     Route: 050
  4. SERETIDE [Concomitant]
     Active Substance: FLUTICASONE PROPIONATE\SALMETEROL XINAFOATE
     Route: 050
  5. VENTOLIN [Concomitant]
     Active Substance: ALBUTEROL SULFATE
     Route: 050
  6. ZITHROMAX [Concomitant]
     Active Substance: AZITHROMYCIN DIHYDRATE
     Route: 050
  7. CALCIUM CARBONATE [Concomitant]
     Active Substance: CALCIUM CARBONATE
     Route: 050
  8. PREDNISONE [Concomitant]
     Active Substance: PREDNISONE
     Route: 050
  9. SALINE [Concomitant]
     Active Substance: SODIUM CHLORIDE
     Route: 050

REACTIONS (4)
  - Influenza like illness [Unknown]
  - Fatigue [Unknown]
  - Burning sensation [Unknown]
  - Bone pain [Unknown]

NARRATIVE: CASE EVENT DATE: 20240712
